FAERS Safety Report 6825899-0 (Version None)
Quarter: 2010Q3

REPORT INFORMATION
  Report Type: 
  Country: None (occurrence: None)
  Receive Date: 20100707
  Receipt Date: 20100707
  Transmission Date: 20110219
  Serious: Yes (Life-Threatening, Hospitalization, Disabling, Other)
  Sender: FDA-Public Use
  Company Number: None

PATIENT
  Age: 50 Year
  Sex: Female
  Weight: 72.5755 kg

DRUGS (4)
  1. PEGYLATED INTERFERON } RADIATION AFFECT [Suspect]
     Indication: HEPATITIS C
     Dosage: 1 SHOT NEEDED 1 X WEEK
     Dates: start: 20040301, end: 20040901
  2. PEGYLATED INTERFERON } RADIATION AFFECT [Suspect]
     Indication: HEPATITIS C
     Dosage: 1 SHOT NEEDED 1 X WEEK
     Dates: start: 20060301, end: 20060701
  3. RIBAVIRIN [Suspect]
     Indication: HEPATITIS C
     Dosage: 12 CAPSULES 1 X A DAY 4X4X4
     Dates: start: 20040301, end: 20040901
  4. RIBAVIRIN [Suspect]
     Indication: HEPATITIS C
     Dosage: 12 CAPSULES 1 X A DAY 4X4X4
     Dates: start: 20060301, end: 20060701

REACTIONS (7)
  - ALOPECIA [None]
  - ANAEMIA [None]
  - CARDIAC DISORDER [None]
  - DIABETES MELLITUS [None]
  - DYSPNOEA [None]
  - HYPOTENSION [None]
  - LIVER DISORDER [None]
